FAERS Safety Report 5779254-5 (Version None)
Quarter: 2008Q2

REPORT INFORMATION
  Report Type: 
  Country: None (occurrence: None)
  Receive Date: 20080619
  Receipt Date: 20080530
  Transmission Date: 20081010
  Serious: No
  Sender: FDA-Public Use
  Company Number: US-JNJFOC-20080600605

PATIENT
  Age: 6 Decade
  Sex: Male

DRUGS (1)
  1. INVEGA [Suspect]
     Indication: SCHIZOAFFECTIVE DISORDER
     Route: 048

REACTIONS (1)
  - BURNING SENSATION [None]
